FAERS Safety Report 4469621-4 (Version None)
Quarter: 2004Q4

REPORT INFORMATION
  Report Type: 
  Country: None (occurrence: None)
  Receive Date: 20041005
  Receipt Date: 20040922
  Transmission Date: 20050328
  Serious: Yes (Other)
  Sender: FDA-Public Use
  Company Number: 199906330

PATIENT
  Age: 37 Year
  Sex: Female
  Weight: 50.8029 kg

DRUGS (1)
  1. BOTOX [Suspect]
     Indication: SKIN WRINKLING
     Dosage: 22 UNITS PRN; IM
     Route: 030
     Dates: start: 19990716

REACTIONS (22)
  - ARTHRALGIA [None]
  - CHILLS [None]
  - DYSARTHRIA [None]
  - ERYTHEMA [None]
  - FACIAL PAIN [None]
  - FACIAL PALSY [None]
  - FEELING ABNORMAL [None]
  - HEADACHE [None]
  - HYPERSENSITIVITY [None]
  - INJECTION SITE ANAESTHESIA [None]
  - JOINT STIFFNESS [None]
  - KERATOCONJUNCTIVITIS SICCA [None]
  - MUSCULAR WEAKNESS [None]
  - NASAL SEPTUM DISORDER [None]
  - NECK PAIN [None]
  - NEUROPATHY [None]
  - PARAESTHESIA [None]
  - SINUSITIS [None]
  - SKIN SWELLING [None]
  - THERAPEUTIC RESPONSE DECREASED [None]
  - VISION BLURRED [None]
  - VISUAL FIELD DEFECT [None]
